FAERS Safety Report 19794333 (Version 1)
Quarter: 2021Q3

REPORT INFORMATION
  Report Type: Spontaneous
  Country: CN (occurrence: CN)
  Receive Date: 20210906
  Receipt Date: 20210906
  Transmission Date: 20211014
  Serious: Yes (Hospitalization, Other)
  Sender: FDA-Public Use
  Company Number: CN-AMGEN-CHNSP2021134807

PATIENT

DRUGS (4)
  1. ASPIRINE [Concomitant]
     Active Substance: ASPIRIN
  2. ALDOSTERONE [Concomitant]
     Active Substance: ALDOSTERONE
  3. EVOLOCUMAB [Suspect]
     Active Substance: EVOLOCUMAB
     Dosage: 140 MILLIGRAM, Q2WK
     Route: 065
  4. EVOLOCUMAB [Suspect]
     Active Substance: EVOLOCUMAB
     Indication: ARTERIOSCLEROSIS
     Dosage: 420 MILLIGRAM, QMO
     Route: 065

REACTIONS (5)
  - Unevaluable event [Unknown]
  - Angina pectoris [Unknown]
  - Cardiovascular disorder [Unknown]
  - Myocardial infarction [Unknown]
  - Arterial revascularisation [Unknown]
